FAERS Safety Report 11247913 (Version 4)
Quarter: 2015Q3

REPORT INFORMATION
  Report Type: Spontaneous
  Country: AU (occurrence: None)
  Receive Date: 20150706
  Receipt Date: 20150831
  Transmission Date: 20151125
  Serious: Yes (Other)
  Sender: FDA-Public Use
  Company Number: ADR-2015-01262

PATIENT
  Age: 23 Year
  Sex: Male

DRUGS (1)
  1. LIORESAL [Suspect]
     Active Substance: BACLOFEN

REACTIONS (10)
  - Drug effect decreased [None]
  - Device power source issue [None]
  - Dystonia [None]
  - Injury [None]
  - Somnolence [None]
  - Device failure [None]
  - Device battery issue [None]
  - Medical device site pain [None]
  - Muscle spasticity [None]
  - Device issue [None]

NARRATIVE: CASE EVENT DATE: 20150627
